FAERS Safety Report 9831452 (Version 1)
Quarter: 2014Q1

REPORT INFORMATION
  Report Type: Spontaneous
  Country: US (occurrence: US)
  Receive Date: 20140121
  Receipt Date: 20140121
  Transmission Date: 20141002
  Serious: No
  Sender: FDA-Public Use
  Company Number: US-009507513-1401USA002916

PATIENT
  Sex: Male

DRUGS (3)
  1. DULERA [Suspect]
     Dosage: 100 MCG/5MCG 1 STD DOSE OF 13
  2. DULERA [Suspect]
     Dosage: 100 MCG/5MCG 1 STD DOSE OF 13
  3. DULERA [Suspect]
     Dosage: 100 MCG/5MCG 1 STD DOSE OF 13

REACTIONS (3)
  - Drug dose omission [Unknown]
  - Product quality issue [Unknown]
  - No adverse event [Unknown]
